FAERS Safety Report 23405787 (Version 4)
Quarter: 2024Q3

REPORT INFORMATION
  Report Type: Spontaneous
  Country: CA (occurrence: CA)
  Receive Date: 20240116
  Receipt Date: 20240812
  Transmission Date: 20241016
  Serious: Yes (Hospitalization, Other)
  Sender: TAKEDA
  Company Number: CA-TAKEDA-2024TUS003260

PATIENT
  Age: 78 Year
  Sex: Female
  Weight: 57 kg

DRUGS (8)
  1. GAMMAGARD LIQUID [Suspect]
     Active Substance: HUMAN IMMUNOGLOBULIN G
     Indication: Encephalitis
     Dosage: 20 GRAM
     Route: 065
     Dates: start: 20231125, end: 20231125
  2. GAMMAGARD LIQUID [Suspect]
     Active Substance: HUMAN IMMUNOGLOBULIN G
     Indication: Ataxia
     Dosage: 172 MILLILITER
     Route: 065
  3. GAMMAGARD LIQUID [Suspect]
     Active Substance: HUMAN IMMUNOGLOBULIN G
     Dosage: 17.2 GRAM
     Route: 042
  4. CALCIUM [Concomitant]
     Active Substance: CALCIUM
     Dosage: 500 MILLIGRAM, QD
     Route: 048
     Dates: start: 20231108, end: 20231129
  5. NASONEX [Concomitant]
     Active Substance: MOMETASONE FUROATE
     Dosage: 50 MICROGRAM, BID
     Route: 045
     Dates: start: 20231109, end: 20231129
  6. ENOXAPARIN SODIUM [Concomitant]
     Active Substance: ENOXAPARIN SODIUM
     Dosage: 40 MILLIGRAM, QD
     Route: 058
     Dates: start: 20231124, end: 20231129
  7. AVAPRO [Concomitant]
     Active Substance: IRBESARTAN
     Dosage: 75 MILLIGRAM, QD
     Route: 048
     Dates: start: 20231108, end: 20231129
  8. POLYETHYLENE GLYCOL 3350 [Concomitant]
     Active Substance: POLYETHYLENE GLYCOL 3350
     Dosage: 17 GRAM, QD
     Route: 048
     Dates: start: 20231122, end: 20231129

REACTIONS (41)
  - Arteriosclerosis [Recovering/Resolving]
  - Ataxia [Recovering/Resolving]
  - Blood pressure diastolic increased [Recovering/Resolving]
  - Body temperature increased [Recovering/Resolving]
  - Chills [Recovering/Resolving]
  - Cyanosis [Recovering/Resolving]
  - Dyspnoea [Recovering/Resolving]
  - Electrocardiogram ST-T segment abnormal [Recovering/Resolving]
  - Electrocardiogram T wave inversion [Recovering/Resolving]
  - Electrocardiogram abnormal [Recovering/Resolving]
  - Febrile nonhaemolytic transfusion reaction [Recovering/Resolving]
  - Feeling cold [Recovering/Resolving]
  - Haemoglobin decreased [Recovering/Resolving]
  - Heart rate increased [Recovering/Resolving]
  - Heart rate irregular [Recovering/Resolving]
  - Hypotension [Recovering/Resolving]
  - Hypoxia [Recovering/Resolving]
  - Mediastinal disorder [Recovering/Resolving]
  - Muscle necrosis [Recovering/Resolving]
  - Myoclonus [Recovering/Resolving]
  - Oxygen saturation decreased [Recovering/Resolving]
  - Oxygen therapy [Recovering/Resolving]
  - Pyrexia [Recovering/Resolving]
  - Respiratory rate increased [Recovering/Resolving]
  - Seizure [Recovering/Resolving]
  - Somnolence [Recovering/Resolving]
  - Stereotypy [Recovering/Resolving]
  - Tachycardia [Recovering/Resolving]
  - Tachypnoea [Recovering/Resolving]
  - Transfusion reaction [Recovering/Resolving]
  - Tremor [Recovering/Resolving]
  - Troponin increased [Recovering/Resolving]
  - Encephalitis [Recovering/Resolving]
  - Myoclonic epilepsy [Recovered/Resolved]
  - Cerebral disorder [Recovered/Resolved]
  - Haemolysis [Recovered/Resolved]
  - COVID-19 [Recovered/Resolved]
  - Viraemia [Unknown]
  - Influenza like illness [Unknown]
  - Bronchospasm [Unknown]
  - Off label use [Unknown]

NARRATIVE: CASE EVENT DATE: 20231125
